FAERS Safety Report 6143903-2 (Version None)
Quarter: 2009Q2

REPORT INFORMATION
  Report Type: 
  Country: None (occurrence: None)
  Receive Date: 20090406
  Receipt Date: 20090326
  Transmission Date: 20091009
  Serious: Yes (Hospitalization)
  Sender: FDA-Public Use
  Company Number: PHHY2009HR11508

PATIENT
  Sex: Male

DRUGS (5)
  1. LEPONEX [Suspect]
     Indication: SCHIZOPHRENIA
     Dosage: 25 MG DAILY
     Route: 048
     Dates: start: 19890101
  2. MODITEN [Concomitant]
     Dosage: 1 TABLET PER DAY
     Route: 048
  3. OXAZEPAM [Concomitant]
     Dosage: 30 MG
  4. EGLONYL [Concomitant]
     Dosage: 200 MG
     Route: 048
  5. AKINETON [Concomitant]

REACTIONS (9)
  - ALANINE AMINOTRANSFERASE INCREASED [None]
  - ASPARTATE AMINOTRANSFERASE INCREASED [None]
  - ASTHENIA [None]
  - BLOOD ALKALINE PHOSPHATASE INCREASED [None]
  - BLOOD BILIRUBIN INCREASED [None]
  - GAMMA-GLUTAMYLTRANSFERASE INCREASED [None]
  - HEPATIC LESION [None]
  - JAUNDICE [None]
  - LAZINESS [None]
